FAERS Safety Report 12780552 (Version 1)
Quarter: 2016Q3

REPORT INFORMATION
  Report Type: Spontaneous
  Country: US (occurrence: US)
  Receive Date: 20160923
  Receipt Date: 20160923
  Transmission Date: 20161109
  Serious: Yes (Hospitalization)
  Sender: FDA-Public Use
  Company Number: None

PATIENT
  Age: 48 Year
  Sex: Female

DRUGS (6)
  1. ORENCIA [Suspect]
     Active Substance: ABATACEPT
     Indication: RHEUMATOID ARTHRITIS
     Route: 058
     Dates: start: 201607
  2. SULFADIAZINE. [Concomitant]
     Active Substance: SULFADIAZINE
  3. FOLIC ACID. [Concomitant]
     Active Substance: FOLIC ACID
  4. LANTUS [Concomitant]
     Active Substance: INSULIN GLARGINE
  5. METHOTREX [Concomitant]
  6. METFORMIN [Concomitant]
     Active Substance: METFORMIN HYDROCHLORIDE

REACTIONS (2)
  - Injection site infection [None]
  - Abscess [None]

NARRATIVE: CASE EVENT DATE: 201609
